FAERS Safety Report 4972676-1 (Version None)
Quarter: 2006Q1

REPORT INFORMATION
  Report Type: 
  Country: None (occurrence: None)
  Receive Date: 20060215
  Receipt Date: 20051111
  Transmission Date: 20060701
  Serious: Yes (Hospitalization)
  Sender: FDA-Public Use
  Company Number: US200511000090

PATIENT
  Age: 61 Year
  Sex: Male
  Weight: 83.9 kg

DRUGS (2)
  1. CIALIS [Suspect]
     Indication: SEXUAL DYSFUNCTION
     Dosage: 20 MG ORAL
     Route: 048
     Dates: start: 20050601, end: 20050823
  2. ASA (ASPIRIN (ACETYLSALCIYLIC ACID) [Concomitant]

REACTIONS (9)
  - CEREBROVASCULAR ACCIDENT [None]
  - DIZZINESS [None]
  - DRUG DEPENDENCE [None]
  - NASAL CONGESTION [None]
  - NASAL OEDEMA [None]
  - PALPITATIONS [None]
  - PRIAPISM [None]
  - STRESS AT WORK [None]
  - VERTIGO [None]
